FAERS Safety Report 6623368-4 (Version None)
Quarter: 2010Q1

REPORT INFORMATION
  Report Type: 
  Country: None (occurrence: None)
  Receive Date: 20100310
  Receipt Date: 20091202
  Transmission Date: 20100710
  Serious: No
  Sender: FDA-Public Use
  Company Number: US-BIOGENIDEC-2009BI039276

PATIENT
  Age: 37 Year
  Sex: Female

DRUGS (4)
  1. AVONEX [Suspect]
     Indication: MULTIPLE SCLEROSIS
     Route: 030
     Dates: start: 20091111, end: 20091111
  2. AVONEX [Suspect]
     Route: 030
     Dates: start: 20091118, end: 20091118
  3. AVONEX [Suspect]
     Route: 030
     Dates: start: 20091125, end: 20091125
  4. AVONEX [Suspect]
     Route: 030
     Dates: start: 20091202

REACTIONS (3)
  - HEADACHE [None]
  - NASOPHARYNGITIS [None]
  - WEIGHT DECREASED [None]
